FAERS Safety Report 11232095 (Version 1)
Quarter: 2015Q3

REPORT INFORMATION
  Report Type: Spontaneous
  Country: ZA (occurrence: ZA)
  Receive Date: 20150701
  Receipt Date: 20150701
  Transmission Date: 20151125
  Serious: Yes (Hospitalization, Disabling, Other)
  Sender: FDA-Public Use
  Company Number: ZA-ELI_LILLY_AND_COMPANY-ZA201506006903

PATIENT
  Age: 62 Year
  Sex: Male

DRUGS (3)
  1. CIALIS [Suspect]
     Active Substance: TADALAFIL
     Dosage: 5 MG, QD
     Route: 048
  2. PLAVIX [Concomitant]
     Active Substance: CLOPIDOGREL BISULFATE
     Indication: PRODUCT USED FOR UNKNOWN INDICATION
     Dosage: UNK, UNKNOWN
     Route: 065
  3. CIALIS [Suspect]
     Active Substance: TADALAFIL
     Indication: ERECTILE DYSFUNCTION
     Dosage: 20 MG, PRN
     Route: 048
     Dates: end: 2012

REACTIONS (15)
  - Optic ischaemic neuropathy [Unknown]
  - Muscular weakness [Unknown]
  - Vitreous floaters [Unknown]
  - Insomnia [Unknown]
  - Contusion [Unknown]
  - CSF pressure increased [Unknown]
  - Haemorrhage [Unknown]
  - Weight decreased [Recovered/Resolved]
  - Blood glucose increased [Unknown]
  - Dyspnoea [Unknown]
  - Papilloedema [Not Recovered/Not Resolved]
  - Pituitary tumour [Unknown]
  - Optic neuritis [Recovering/Resolving]
  - Visual acuity reduced [Recovering/Resolving]
  - Arthralgia [Unknown]

NARRATIVE: CASE EVENT DATE: 20120905
